FAERS Safety Report 4730210-5 (Version None)
Quarter: 2005Q3

REPORT INFORMATION
  Report Type: 
  Country: None (occurrence: None)
  Receive Date: 20050801
  Receipt Date: 20050721
  Transmission Date: 20060218
  Serious: Yes (Hospitalization, Disabling)
  Sender: FDA-Public Use
  Company Number: 2005SE04243

PATIENT
  Age: 72 Year
  Sex: Female

DRUGS (5)
  1. AMIAS 16MG TABLETS [Suspect]
     Indication: AORTIC VALVE DISEASE
     Route: 048
     Dates: start: 20030101, end: 20050628
  2. CINNARIZINE [Concomitant]
     Route: 048
  3. ASPIRIN [Concomitant]
     Indication: HYPERTENSION
     Route: 048
  4. FUROSEMIDE [Concomitant]
     Indication: HYPERTENSION
     Route: 048
  5. THYROXINE [Concomitant]
     Route: 048

REACTIONS (2)
  - BLOOD CREATINE PHOSPHOKINASE INCREASED [None]
  - MYOSITIS [None]
